FAERS Safety Report 14388666 (Version 2)
Quarter: 2018Q3

REPORT INFORMATION
  Report Type: Spontaneous
  Country: US (occurrence: US)
  Receive Date: 20180115
  Receipt Date: 20180814
  Transmission Date: 20181010
  Serious: Yes (Other)
  Sender: FDA-Public Use
  Company Number: US-SA-2017SA217907

PATIENT
  Age: 31 Year
  Sex: Female
  Weight: 79 kg

DRUGS (7)
  1. FLUOROURACIL. [Concomitant]
     Active Substance: FLUOROURACIL
  2. IBUPROFEN. [Concomitant]
     Active Substance: IBUPROFEN
  3. TAXOTERE [Suspect]
     Active Substance: DOCETAXEL
     Dosage: 136 MG, Q3W
     Route: 042
     Dates: start: 20021211, end: 20021211
  4. NEOSAR [Concomitant]
     Active Substance: CYCLOPHOSPHAMIDE
  5. DOXORUBICIN [Concomitant]
     Active Substance: DOXORUBICIN
  6. TREXALL [Concomitant]
     Active Substance: METHOTREXATE SODIUM
  7. TAXOTERE [Suspect]
     Active Substance: DOCETAXEL
     Indication: BREAST CANCER FEMALE
     Dosage: 136 MG, Q3W
     Route: 042
     Dates: start: 20021001, end: 20021001

REACTIONS (1)
  - Alopecia [Not Recovered/Not Resolved]

NARRATIVE: CASE EVENT DATE: 20040228
